FAERS Safety Report 18104109 (Version 1)
Quarter: 2020Q3

REPORT INFORMATION
  Report Type: Spontaneous
  Country: US (occurrence: US)
  Receive Date: 20200801
  Receipt Date: 20200801
  Transmission Date: 20201103
  Serious: Yes (Other)
  Sender: FDA-Public Use
  Company Number: None

PATIENT
  Age: 67 Year
  Sex: Female
  Weight: 126 kg

DRUGS (5)
  1. CPAP [Concomitant]
     Active Substance: DEVICE
  2. LOSARTAN 50MG TABLETS MFG CAMBER [Suspect]
     Active Substance: LOSARTAN
     Indication: HYPERTENSION
     Dosage: ?          QUANTITY:100 TABLET(S);?
     Route: 048
     Dates: start: 20200729, end: 20200729
  3. MULTIVITAMIN [Concomitant]
     Active Substance: VITAMINS
  4. VITAMIN C [Concomitant]
     Active Substance: ASCORBIC ACID
  5. PROBIOTIC [Concomitant]
     Active Substance: PROBIOTICS NOS

REACTIONS (5)
  - Palpitations [None]
  - Chest pain [None]
  - Product taste abnormal [None]
  - Product quality issue [None]
  - Manufacturing issue [None]

NARRATIVE: CASE EVENT DATE: 20200729
